FAERS Safety Report 7385100-9 (Version None)
Quarter: 2011Q1

REPORT INFORMATION
  Report Type: 
  Country: None (occurrence: None)
  Receive Date: 20110330
  Receipt Date: 20110325
  Transmission Date: 20110831
  Serious: Yes (Death)
  Sender: FDA-Public Use
  Company Number: JP-CEPHALON-2011001124

PATIENT
  Sex: Male
  Weight: 77 kg

DRUGS (2)
  1. PREDNISOLONE [Concomitant]
     Dates: start: 20110122, end: 20110306
  2. BENDAMUSTINE HCL [Suspect]
     Indication: B-CELL LYMPHOMA
     Route: 041
     Dates: start: 20110214, end: 20110215

REACTIONS (1)
  - NON-HODGKIN'S LYMPHOMA [None]
